FAERS Safety Report 15306318 (Version 5)
Quarter: 2019Q4

REPORT INFORMATION
  Report Type: Spontaneous
  Country: US (occurrence: US)
  Receive Date: 20180822
  Receipt Date: 20191205
  Transmission Date: 20200122
  Serious: No
  Sender: FDA-Public Use
  Company Number: US-AMGEN-USASP2018113926

PATIENT
  Age: 52 Year
  Sex: Female
  Weight: 58 kg

DRUGS (4)
  1. XELJANZ XR [Concomitant]
     Active Substance: TOFACITINIB CITRATE
     Dosage: 11 MG, UNK
  2. ENBREL [Suspect]
     Active Substance: ETANERCEPT
     Indication: RHEUMATOID ARTHRITIS
     Dosage: 50 MILLIGRAM, WEEKLY (50MG SURECLICK AUTOINJECTOR SHOT ONCE WEEKLY)
     Route: 065
     Dates: start: 2014, end: 20180808
  3. ENBREL [Suspect]
     Active Substance: ETANERCEPT
     Indication: FOOT DEFORMITY
     Dosage: UNK
     Route: 065
  4. ENBREL [Suspect]
     Active Substance: ETANERCEPT
     Indication: HAND DEFORMITY
     Dosage: UNK
     Route: 065

REACTIONS (4)
  - Jaundice [Unknown]
  - Foot deformity [Unknown]
  - Therapeutic product effect decreased [Unknown]
  - Drug ineffective [Not Recovered/Not Resolved]
